FAERS Safety Report 19575858 (Version 1)
Quarter: 2021Q3

REPORT INFORMATION
  Report Type: Report from Study
  Country: FR (occurrence: FR)
  Receive Date: 20210719
  Receipt Date: 20210719
  Transmission Date: 20211014
  Serious: Yes (Hospitalization)
  Sender: FDA-Public Use
  Company Number: FR-ROCHE-2871276

PATIENT
  Age: 68 Year
  Sex: Female

DRUGS (10)
  1. NASONEX [Concomitant]
     Active Substance: MOMETASONE FUROATE
  2. INNOVAIR [Concomitant]
     Active Substance: BECLOMETHASONE DIPROPIONATE\FORMOTEROL
  3. BISOPROLOL [Concomitant]
     Active Substance: BISOPROLOL
  4. BLINDED AZATHIOPRINE SODIUM [Suspect]
     Active Substance: AZATHIOPRINE SODIUM
     Indication: VASCULITIS NECROTISING
     Route: 048
     Dates: start: 20200506
  5. SALBUTAMOL [Concomitant]
     Active Substance: ALBUTEROL
  6. RHINOMAXIL [Concomitant]
     Active Substance: BECLOMETHASONE DIPROPIONATE
  7. RITUXIMAB. [Suspect]
     Active Substance: RITUXIMAB
     Indication: VASCULITIS NECROTISING
     Route: 041
     Dates: start: 20200506, end: 20201102
  8. ELIQUIS [Concomitant]
     Active Substance: APIXABAN
  9. BACTRIM [Concomitant]
     Active Substance: SULFAMETHOXAZOLE\TRIMETHOPRIM
  10. ZYMAD [Concomitant]
     Active Substance: CHOLECALCIFEROL

REACTIONS (1)
  - Respiratory disorder [Recovered/Resolved]

NARRATIVE: CASE EVENT DATE: 20210416
